FAERS Safety Report 7955812-4 (Version None)
Quarter: 2011Q4

REPORT INFORMATION
  Report Type: 
  Country: None (occurrence: None)
  Receive Date: 20111205
  Receipt Date: 20111130
  Transmission Date: 20120403
  Serious: Yes (Hospitalization)
  Sender: FDA-Public Use
  Company Number: US-BIOGENIDEC-2011BI028473

PATIENT
  Age: 52 Year
  Sex: Female

DRUGS (3)
  1. AVONEX [Suspect]
     Route: 030
     Dates: start: 20010101, end: 20020101
  2. AVONEX [Suspect]
     Route: 030
     Dates: start: 20030101, end: 20110916
  3. AVONEX [Suspect]
     Indication: MULTIPLE SCLEROSIS
     Route: 030
     Dates: start: 20030301, end: 20030101

REACTIONS (12)
  - UPPER LIMB FRACTURE [None]
  - FALL [None]
  - TRISMUS [None]
  - MALAISE [None]
  - ASTHENIA [None]
  - NEPHROLITHIASIS [None]
  - KIDNEY INFECTION [None]
  - FUNGAL INFECTION [None]
  - RENAL IMPAIRMENT [None]
  - TOOTH FRACTURE [None]
  - MUSCULOSKELETAL DISORDER [None]
  - URINARY TRACT INFECTION [None]
